FAERS Safety Report 7637231-3 (Version None)
Quarter: 2011Q3

REPORT INFORMATION
  Report Type: 
  Country: None (occurrence: None)
  Receive Date: 20110726
  Receipt Date: 20091027
  Transmission Date: 20111222
  Serious: Yes (Other)
  Sender: FDA-Public Use
  Company Number: US-BAYER-200937719NA

PATIENT
  Age: 62 Year
  Sex: Male
  Weight: 82.54 kg

DRUGS (18)
  1. TRASYLOL [Suspect]
     Dosage: 25 ML/HR, INFUSION DOSE
     Route: 042
     Dates: start: 20010103, end: 20010103
  2. MONOPRIL [Concomitant]
     Dosage: 10 MG, UNK
     Route: 048
  3. LASIX [Concomitant]
     Dosage: 40 MG, BID
     Route: 042
     Dates: start: 20001229, end: 20010104
  4. VERSED [Concomitant]
     Dosage: 24 MG, UNK
     Route: 042
     Dates: start: 20010103, end: 20010103
  5. RED BLOOD CELLS [Concomitant]
     Dosage: 1 U, UNK
     Route: 042
     Dates: start: 20010103
  6. TRASYLOL [Suspect]
     Dosage: 100 ML CARDIOPULMONARY BYPASS PRIME
     Route: 042
     Dates: start: 20010103, end: 20010103
  7. ACETYLSALICYLIC ACID SRT [Concomitant]
     Dosage: 325 MG, ONCE
     Route: 048
  8. GLUCOTROL XL [Concomitant]
     Dosage: 10 MG, UNK
     Route: 048
  9. DIGOXIN [Concomitant]
     Dosage: 0.5 MG, UNK
     Route: 042
     Dates: start: 20010101
  10. TRASYLOL [Suspect]
     Dosage: 100 ML, LOADING DOSE
     Route: 042
     Dates: start: 20010103, end: 20010103
  11. GLUCOPHAGE [Concomitant]
     Dosage: 500 MG, UNK
     Route: 048
  12. ANCEF [Concomitant]
     Dosage: 2 G, UNK
     Route: 042
     Dates: start: 20010103, end: 20010103
  13. PROTAMINE SULFATE [Concomitant]
     Dosage: 400 MG, UNK
     Route: 042
     Dates: start: 20010103, end: 20010103
  14. TRASYLOL [Suspect]
     Indication: MITRAL VALVE REPAIR
     Dosage: 1 ML, ONCE, INITIAL TEST DOSE
     Route: 042
     Dates: start: 20010103, end: 20010103
  15. HEPARIN [Concomitant]
     Dosage: 20000 U, UNK
     Route: 042
     Dates: start: 20010103, end: 20010103
  16. DIGOXIN [Concomitant]
     Dosage: 0.25 MG
     Route: 042
     Dates: start: 20010101
  17. AMIODARONE HCL [Concomitant]
     Dosage: 100 MG, UNK
     Route: 048
     Dates: start: 20001230, end: 20010102
  18. FENTANYL [Concomitant]
     Dosage: 25 ML, UNK
     Route: 042
     Dates: start: 20010103, end: 20010103

REACTIONS (6)
  - RENAL FAILURE ACUTE [None]
  - RENAL FAILURE [None]
  - PSYCHIATRIC SYMPTOM [None]
  - INJURY [None]
  - PAIN [None]
  - UNEVALUABLE EVENT [None]
